FAERS Safety Report 4479075-X (Version None)
Quarter: 2004Q4

REPORT INFORMATION
  Report Type: 
  Country: None (occurrence: None)
  Receive Date: 20041015
  Receipt Date: 20040930
  Transmission Date: 20050328
  Serious: Yes (Hospitalization)
  Sender: FDA-Public Use
  Company Number: WAES 0404NZL00026

PATIENT
  Age: 53 Year
  Sex: Male
  Weight: 84.8226 kg

DRUGS (2)
  1. VIOXX [Suspect]
     Indication: NEOPLASM PROPHYLAXIS
     Dosage: 25MG/DAILY/PO
     Route: 048
     Dates: start: 20031009, end: 20040426
  2. TAMSULOSIN HYDROCHLORIDE [Concomitant]

REACTIONS (4)
  - DIVERTICULUM [None]
  - GASTRITIS [None]
  - HIATUS HERNIA [None]
  - MELAENA [None]
